FAERS Safety Report 11849769 (Version 1)
Quarter: 2015Q4

REPORT INFORMATION
  Report Type: Spontaneous
  Country: US (occurrence: US)
  Receive Date: 20151218
  Receipt Date: 20151218
  Transmission Date: 20160305
  Serious: No
  Sender: FDA-Public Use
  Company Number: US-TEVA-586451USA

PATIENT
  Sex: Male

DRUGS (1)
  1. NAPROXEN. [Suspect]
     Active Substance: NAPROXEN
     Route: 065

REACTIONS (3)
  - Hypoacusis [Not Recovered/Not Resolved]
  - Tinnitus [Unknown]
  - Blood pressure increased [Unknown]
